FAERS Safety Report 21759420 (Version 1)
Quarter: 2022Q4

REPORT INFORMATION
  Report Type: Spontaneous
  Country: CN (occurrence: CN)
  Receive Date: 20221221
  Receipt Date: 20221221
  Transmission Date: 20230112
  Serious: Yes (Death)
  Sender: FDA-Public Use
  Company Number: CN-002147023-NVSC2022CN293095

PATIENT
  Age: 50 Year
  Sex: Male

DRUGS (1)
  1. RANIBIZUMAB [Suspect]
     Active Substance: RANIBIZUMAB
     Indication: Choroidal neovascularisation
     Dosage: 0.05 ML, QMO, (10MG/ML BOTTLED 0.165ML)
     Route: 050
     Dates: start: 20221216, end: 20221216

REACTIONS (1)
  - Cardiac failure [Fatal]
